FAERS Safety Report 5325258-6 (Version None)
Quarter: 2007Q2

REPORT INFORMATION
  Report Type: 
  Country: None (occurrence: None)
  Receive Date: 20070515
  Receipt Date: 20070424
  Transmission Date: 20071010
  Serious: Yes (Other)
  Sender: FDA-Public Use
  Company Number: US-RB-006048-07

PATIENT
  Sex: Female

DRUGS (2)
  1. SUBUTEX [Suspect]
     Dosage: DOSAGE UNKNOWN
     Route: 060
  2. SUBOXONE [Suspect]
     Dosage: DOSAGE RE-STARTED AFTER MISCARRIAGE IN UNKNOWN AMOUNT
     Route: 060

REACTIONS (2)
  - ABORTION SPONTANEOUS [None]
  - PREGNANCY [None]
